FAERS Safety Report 24856283 (Version 2)
Quarter: 2025Q1

REPORT INFORMATION
  Report Type: Spontaneous
  Country: JP (occurrence: JP)
  Receive Date: 20250117
  Receipt Date: 20250130
  Transmission Date: 20250409
  Serious: Yes (Other)
  Sender: HRA PHARMA
  Company Number: JP-ORG100014127-2025000008

PATIENT
  Age: 53 Year
  Sex: Female

DRUGS (6)
  1. METYRAPONE [Suspect]
     Active Substance: METYRAPONE
     Indication: Pituitary-dependent Cushing^s syndrome
     Route: 048
     Dates: start: 202004
  2. METYRAPONE [Suspect]
     Active Substance: METYRAPONE
     Indication: Pituitary-dependent Cushing^s syndrome
  3. METYRAPONE [Suspect]
     Active Substance: METYRAPONE
     Indication: Pituitary-dependent Cushing^s syndrome
  4. Amlodipine? [Concomitant]
     Indication: Product used for unknown indication
  5. PARMODIA(Pemafibrate) [Concomitant]
     Indication: Product used for unknown indication
  6. OMEGA-3-ACID ETHYL ESTERS [Concomitant]
     Active Substance: OMEGA-3-ACID ETHYL ESTERS
     Indication: Product used for unknown indication

REACTIONS (2)
  - Graves^ disease [Recovered/Resolved]
  - Adrenal insufficiency [Unknown]

NARRATIVE: CASE EVENT DATE: 20231201
